FAERS Safety Report 11821660 (Version 1)
Quarter: 2015Q4

REPORT INFORMATION
  Report Type: Spontaneous
  Country: US (occurrence: US)
  Receive Date: 20151210
  Receipt Date: 20151210
  Transmission Date: 20160305
  Serious: No
  Sender: FDA-Public Use
  Company Number: US-JNJFOC-20150400146

PATIENT
  Age: 78 Year
  Sex: Female

DRUGS (10)
  1. IMBRUVICA [Suspect]
     Active Substance: IBRUTINIB
     Indication: CHRONIC LYMPHOCYTIC LEUKAEMIA
     Route: 048
  2. PREMARIN [Concomitant]
     Active Substance: ESTROGENS, CONJUGATED
     Dosage: Q WEEKLY
     Route: 061
  3. SALBUTAMOL [Concomitant]
     Active Substance: ALBUTEROL
     Dosage: 90 MCG, Q4-Q6 H PRN
  4. TRETINOIN. [Concomitant]
     Active Substance: TRETINOIN
     Route: 061
  5. TOBRAMYCIN AND DEXAMETHASONE [Concomitant]
     Active Substance: DEXAMETHASONE\TOBRAMYCIN
     Dosage: 1 GTT (0.3%-0.1%) GTT OD Q6H
     Route: 047
  6. VITAMIN D3 [Concomitant]
     Active Substance: CHOLECALCIFEROL
     Dosage: 1000 UNIT
  7. BACITRACIN. [Concomitant]
     Active Substance: BACITRACIN
     Dosage: 1 APPLICATION
     Route: 061
  8. ALPHAGAN P [Concomitant]
     Active Substance: BRIMONIDINE TARTRATE
     Dosage: 1 GTT (15%),
     Route: 047
  9. FOLATE [Concomitant]
     Active Substance: FOLATE SODIUM
     Route: 048
  10. VALACYCLOVIR [Concomitant]
     Active Substance: VALACYCLOVIR HYDROCHLORIDE
     Dosage: QD
     Route: 048

REACTIONS (3)
  - Paronychia [Unknown]
  - Onychomycosis [Unknown]
  - Onychomadesis [Unknown]

NARRATIVE: CASE EVENT DATE: 201406
